FAERS Safety Report 8281690-2 (Version None)
Quarter: 2012Q2

REPORT INFORMATION
  Report Type: 
  Country: None (occurrence: None)
  Receive Date: 20120413
  Receipt Date: 20120409
  Transmission Date: 20120825
  Serious: Yes (Life-Threatening, Hospitalization)
  Sender: FDA-Public Use
  Company Number: US-JNJFOC-20120211912

PATIENT
  Age: 43 Year
  Sex: Female

DRUGS (1)
  1. IMODIUM [Suspect]
     Indication: PRODUCT USED FOR UNKNOWN INDICATION
     Dosage: 140 TABLETS, DAILY
     Route: 048

REACTIONS (6)
  - TORSADE DE POINTES [None]
  - INTENTIONAL OVERDOSE [None]
  - SYNCOPE [None]
  - VENTRICULAR TACHYCARDIA [None]
  - ELECTROCARDIOGRAM QT PROLONGED [None]
  - INTENTIONAL DRUG MISUSE [None]
